FAERS Safety Report 5720861-3 (Version None)
Quarter: 2008Q2

REPORT INFORMATION
  Report Type: 
  Country: None (occurrence: None)
  Receive Date: 20080429
  Receipt Date: 20071119
  Transmission Date: 20081010
  Serious: No
  Sender: FDA-Public Use
  Company Number: A0696082A

PATIENT
  Sex: Male

DRUGS (7)
  1. SEREVENT [Suspect]
     Indication: DRUG USE FOR UNKNOWN INDICATION
     Route: 055
  2. QVAR 40 [Concomitant]
  3. PROPAFENONE HCL [Concomitant]
  4. METHADONE HCL [Concomitant]
     Dosage: 20MGD PER DAY
  5. PERCOCET [Concomitant]
  6. GABAPENTIN [Concomitant]
  7. FLUOXETINE [Concomitant]
     Dosage: 20MGD PER DAY

REACTIONS (5)
  - ADVERSE DRUG REACTION [None]
  - ASTHENIA [None]
  - HEADACHE [None]
  - MALAISE [None]
  - SOMNOLENCE [None]
